FAERS Safety Report 9337399 (Version 1)
Quarter: 2013Q2

REPORT INFORMATION
  Report Type: Spontaneous
  Country: GB (occurrence: GB)
  Receive Date: 20130607
  Receipt Date: 20130607
  Transmission Date: 20140414
  Serious: Yes (Other)
  Sender: FDA-Public Use
  Company Number: GB-ALLERGAN-1308000US

PATIENT
  Age: 56 Year
  Sex: Male
  Weight: 86 kg

DRUGS (3)
  1. COMBIGAN [Suspect]
     Indication: ABNORMAL SENSATION IN EYE
     Dosage: 2 DROPS DAILY
     Route: 047
     Dates: start: 20080802
  2. LUMIGAN [Suspect]
     Indication: ABNORMAL SENSATION IN EYE
     Dosage: 1 DROP DAILY AT BEDTIME
     Route: 047
     Dates: start: 20080802
  3. AZOPT [Suspect]
     Indication: ABNORMAL SENSATION IN EYE
     Dosage: 2 DROPS DAILY
     Route: 047
     Dates: start: 20080802

REACTIONS (9)
  - Amnesia [Not Recovered/Not Resolved]
  - Parkinson^s disease [Not Recovered/Not Resolved]
  - Tremor [Not Recovered/Not Resolved]
  - Malaise [Not Recovered/Not Resolved]
  - Tinnitus [Not Recovered/Not Resolved]
  - Fatigue [Not Recovered/Not Resolved]
  - Diarrhoea [Not Recovered/Not Resolved]
  - Dizziness [Not Recovered/Not Resolved]
  - Ocular hyperaemia [Not Recovered/Not Resolved]
